FAERS Safety Report 6062667-4 (Version None)
Quarter: 2009Q1

REPORT INFORMATION
  Report Type: 
  Country: None (occurrence: None)
  Receive Date: 20090203
  Receipt Date: 20090126
  Transmission Date: 20090719
  Serious: Yes (Other)
  Sender: FDA-Public Use
  Company Number: JP-AVENTIS-200910154JP

PATIENT
  Age: 85 Year
  Sex: Male

DRUGS (3)
  1. ALLEGRA [Suspect]
     Route: 048
     Dates: start: 20040101, end: 20080101
  2. CHINESE HERBAL MEDICINE NOS [Concomitant]
     Indication: DEMENTIA
     Route: 048
  3. UNKNOWN DRUG [Concomitant]

REACTIONS (6)
  - CONDITION AGGRAVATED [None]
  - DELIRIUM [None]
  - DEMENTIA [None]
  - HALLUCINATION [None]
  - HALLUCINATION, AUDITORY [None]
  - IRRITABILITY [None]
